FAERS Safety Report 25603159 (Version 1)
Quarter: 2025Q3

REPORT INFORMATION
  Report Type: Spontaneous
  Country: EU (occurrence: EU)
  Receive Date: 20250724
  Receipt Date: 20250724
  Transmission Date: 20251021
  Serious: Yes (Hospitalization, Other)
  Sender: ANI
  Company Number: EU-ANIPHARMA-2025-ES-000034

PATIENT
  Age: 74 Year
  Sex: Female
  Weight: 63 kg

DRUGS (13)
  1. CANDESARTAN CILEXETIL [Suspect]
     Active Substance: CANDESARTAN CILEXETIL
     Indication: Hypertension
     Route: 048
     Dates: start: 20241215, end: 20250421
  2. TAPENTADOL [Concomitant]
     Active Substance: TAPENTADOL
     Dates: start: 20250409
  3. OMEPRAZOLE [Concomitant]
     Active Substance: OMEPRAZOLE
     Dates: start: 2023
  4. FENTANYL [Concomitant]
     Active Substance: FENTANYL
     Dates: start: 20250416
  5. TRAMADOL [Concomitant]
     Active Substance: TRAMADOL
     Dates: start: 202502
  6. FUROSEMIDE [Suspect]
     Active Substance: FUROSEMIDE
     Route: 048
     Dates: start: 20250227, end: 20250421
  7. ATORVASTATIN [Concomitant]
     Active Substance: ATORVASTATIN
     Dates: start: 2023
  8. BISOPROLOL [Concomitant]
     Active Substance: BISOPROLOL
     Dates: start: 2024
  9. DAPAGLIFLOZIN [Concomitant]
     Active Substance: DAPAGLIFLOZIN
     Dates: start: 2024
  10. APIXABAN [Concomitant]
     Active Substance: APIXABAN
     Dates: start: 2024
  11. DEXAMETHASONE [Concomitant]
     Active Substance: DEXAMETHASONE
     Dates: start: 2024
  12. CALCIFEDIOL [Concomitant]
     Active Substance: CALCIFEDIOL
  13. VANCOMYCIN [Suspect]
     Active Substance: VANCOMYCIN
     Route: 042
     Dates: start: 20250419, end: 20250421

REACTIONS (12)
  - Subacute endocarditis [Unknown]
  - Acute kidney injury [Recovering/Resolving]
  - Lacunar stroke [Unknown]
  - Hypotension [Recovered/Resolved]
  - Compression fracture [Unknown]
  - Leukocytosis [Unknown]
  - Neutrophilia [Unknown]
  - Staphylococcal bacteraemia [Unknown]
  - Blood potassium decreased [Recovered/Resolved]
  - Anaemia [Unknown]
  - Blood pH decreased [Unknown]
  - Blood bicarbonate decreased [Unknown]

NARRATIVE: CASE EVENT DATE: 20250417
